FAERS Safety Report 4443917-4 (Version None)
Quarter: 2004Q3

REPORT INFORMATION
  Report Type: 
  Country: None (occurrence: None)
  Receive Date: 20040729
  Receipt Date: 20030929
  Transmission Date: 20050211
  Serious: Yes (Other)
  Sender: FDA-Public Use
  Company Number: NSADSS2003019078

PATIENT
  Age: 84 Year
  Sex: Female

DRUGS (6)
  1. RISPERDAL [Suspect]
     Indication: DRUG USE FOR UNKNOWN INDICATION
     Dosage: 0.5 MG, 1 IN 1 DAY, ORAL
     Route: 048
     Dates: start: 20020910, end: 20021201
  2. REMINYL [Concomitant]
  3. ZOLOFT (TABLETS) SERTRALINE HYDROCHLORIDE TABLETS [Concomitant]
  4. PERIACTIN [Concomitant]
  5. ASPIRIN [Concomitant]
  6. DITROPAN [Concomitant]

REACTIONS (1)
  - TRANSIENT ISCHAEMIC ATTACK [None]
